FAERS Safety Report 7351630-9 (Version None)
Quarter: 2011Q1

REPORT INFORMATION
  Report Type: 
  Country: None (occurrence: None)
  Receive Date: 20110315
  Receipt Date: 20110308
  Transmission Date: 20110831
  Serious: Yes (Hospitalization)
  Sender: FDA-Public Use
  Company Number: US-BIOGENIDEC-2011BI003767

PATIENT
  Age: 43 Year
  Sex: Female

DRUGS (3)
  1. PROVIGIL [Concomitant]
     Indication: PRODUCT USED FOR UNKNOWN INDICATION
  2. TYSABRI [Suspect]
     Indication: MULTIPLE SCLEROSIS
     Route: 042
     Dates: start: 20090511
  3. KLONOPIN [Concomitant]
     Indication: ANXIETY

REACTIONS (1)
  - UTERINE LEIOMYOMA [None]
